FAERS Safety Report 5528384-1 (Version None)
Quarter: 2007Q4

REPORT INFORMATION
  Report Type: 
  Country: None (occurrence: None)
  Receive Date: 20071121
  Receipt Date: 20071107
  Transmission Date: 20080405
  Serious: Yes (Hospitalization)
  Sender: FDA-Public Use
  Company Number: 17844

PATIENT
  Age: 26 Year
  Sex: Male

DRUGS (16)
  1. VINCRISTINE [Suspect]
  2. METHOTREXATE [Suspect]
  3. ETOPOSIDE [Suspect]
  4. FLUDARABINE PHOSPHATE [Suspect]
  5. DEXAMETHASONE TAB [Suspect]
  6. DAUNORUBICIN HCL [Concomitant]
  7. CYTARABINE [Concomitant]
  8. PEGASPARGASE [Suspect]
  9. CYCLOPHOSPHAMIDE [Concomitant]
  10. MERCAPTOPURINE [Concomitant]
  11. VINDESINE [Concomitant]
  12. AMSACRINE [Concomitant]
  13. CLADRIBINE [Concomitant]
  14. ALEMTUZUMAB [Concomitant]
  15. ANTITHYMOCYTE IMMUNOGLOBULIN [Concomitant]
  16. CYCLOSPORINE [Concomitant]

REACTIONS (6)
  - DRUG RESISTANCE [None]
  - LYMPHOPENIA [None]
  - NEUTROPENIA [None]
  - SINUSITIS [None]
  - STEM CELL TRANSPLANT [None]
  - SYSTEMIC CANDIDA [None]
